FAERS Safety Report 4613684-X (Version None)
Quarter: 2005Q1

REPORT INFORMATION
  Report Type: 
  Country: None (occurrence: None)
  Receive Date: 20050315
  Receipt Date: 20050225
  Transmission Date: 20050727
  Serious: No
  Sender: FDA-Public Use
  Company Number: 10446

PATIENT
  Sex: Female

DRUGS (1)
  1. MORPHINE [Suspect]
     Dosage: 1800 MG ONCE PO
     Route: 048
     Dates: start: 20040101

REACTIONS (2)
  - INTENTIONAL MISUSE [None]
  - RESPIRATORY DEPRESSION [None]
